FAERS Safety Report 20616368 (Version 16)
Quarter: 2024Q4

REPORT INFORMATION
  Report Type: Spontaneous
  Country: IN (occurrence: IN)
  Receive Date: 20220321
  Receipt Date: 20241211
  Transmission Date: 20250115
  Serious: Yes (Other)
  Sender: PFIZER
  Company Number: IN-PFIZER INC-2021270252

PATIENT
  Age: 64 Year
  Sex: Female

DRUGS (7)
  1. PALBOCICLIB [Suspect]
     Active Substance: PALBOCICLIB
     Indication: Breast cancer metastatic
     Dosage: ONCE A DAY AFTER LUNCH, 21/28 DAYS
     Route: 048
     Dates: start: 20210109
  2. PALBOCICLIB [Suspect]
     Active Substance: PALBOCICLIB
     Dosage: 125 MG, 1X/DAY
  3. PANTOPRAZOLE SODIUM [Concomitant]
     Active Substance: PANTOPRAZOLE SODIUM
     Dosage: 40 MG, 1X/DAY (1-BEFORE BREAKFAST, DOSE: 1-0-0, BEFORE FOOD -DAILY)
  4. FEMARA [Concomitant]
     Active Substance: LETROZOLE
     Dosage: 2.5 MG, 1-AFTER LUNCH, DOSE 0-1-0, DURATION FOOD-DAILY -30 DAYS
  5. ZOLEDRONIC [Concomitant]
     Active Substance: ZOLEDRONIC ACID
     Dosage: 3 MG, DAILY (3 MG IN 100ML NS)
  6. GRILINCTUS [AMMONIUM CHLORIDE;CHLORPHENAMINE MALEATE;DEXTROMETHORPHAN [Concomitant]
     Indication: Cough
     Dosage: UNK
  7. CCM [CALCIUM CITRATE MALATE;COLECALCIFEROL;FOLIC ACID] [Concomitant]
     Dosage: UNK, AFTER FOOD - DAILY (OD)

REACTIONS (19)
  - Chest pain [Unknown]
  - Blood pressure increased [Unknown]
  - Fatigue [Unknown]
  - Vomiting [Unknown]
  - Renal pain [Unknown]
  - Bone pain [Unknown]
  - Malaise [Unknown]
  - Muscle strain [Unknown]
  - Restlessness [Unknown]
  - COVID-19 [Unknown]
  - Alopecia [Unknown]
  - Fear [Recovering/Resolving]
  - Paraesthesia [Unknown]
  - Haemoglobin decreased [Unknown]
  - Blood creatinine increased [Unknown]
  - Lymphocyte percentage increased [Unknown]
  - Cough [Unknown]
  - Dyspnoea [Unknown]
  - Blood calcium increased [Unknown]
